FAERS Safety Report 9415854 (Version 1)
Quarter: 2013Q3

REPORT INFORMATION
  Report Type: Spontaneous
  Country: BE (occurrence: BE)
  Receive Date: 20130724
  Receipt Date: 20130724
  Transmission Date: 20140515
  Serious: Yes (Hospitalization)
  Sender: FDA-Public Use
  Company Number: BE-ROCHE-1251164

PATIENT
  Sex: Female

DRUGS (1)
  1. ROACCUTANE [Suspect]
     Indication: ACNE
     Route: 065

REACTIONS (6)
  - Delirium [Unknown]
  - Insomnia [Unknown]
  - Decreased appetite [Unknown]
  - Aphasia [Unknown]
  - Muscle atrophy [Unknown]
  - Schizophrenia [Unknown]
